FAERS Safety Report 7947380-8 (Version None)
Quarter: 2011Q4

REPORT INFORMATION
  Report Type: 
  Country: None (occurrence: None)
  Receive Date: 20111130
  Receipt Date: 20111116
  Transmission Date: 20120403
  Serious: Yes (Other)
  Sender: FDA-Public Use
  Company Number: US-PAR PHARMACEUTICAL, INC-2011SCPR003426

PATIENT

DRUGS (3)
  1. PROPRANOLOL HYDROCHLORIDE [Suspect]
     Dosage: 0.7 MG/KG/DAY, BID
     Route: 048
  2. PROPRANOLOL HYDROCHLORIDE [Suspect]
     Indication: HAEMANGIOMA
     Dosage: 1 MG/KG/DAY, TID
     Route: 048
  3. PROPRANOLOL HYDROCHLORIDE [Suspect]
     Dosage: 0.9 MG/KG/DAY, TID
     Route: 048

REACTIONS (4)
  - TOXICITY TO VARIOUS AGENTS [None]
  - LIVEDO RETICULARIS [None]
  - PERIPHERAL COLDNESS [None]
  - CYANOSIS [None]
